FAERS Safety Report 4335930-2 (Version None)
Quarter: 2004Q2

REPORT INFORMATION
  Report Type: 
  Country: None (occurrence: None)
  Receive Date: 20040408
  Receipt Date: 20040331
  Transmission Date: 20050107
  Serious: Yes (Death, Other)
  Sender: FDA-Public Use
  Company Number: A-CH2004-05581

PATIENT
  Age: 68 Year
  Sex: Male

DRUGS (9)
  1. TRACLEER [Suspect]
     Indication: PULMONARY HYPERTENSION
     Dosage: 125 MG, BID, ORAL
     Route: 048
     Dates: start: 20030919, end: 20030929
  2. FUROSEMIDE [Concomitant]
  3. THYROXINE ^APS^ (LEVOTHYROXINE SODIUM) [Concomitant]
  4. TRAMADOL HCL [Concomitant]
  5. GABAPENTIN [Concomitant]
  6. DEXAMETHASONE [Concomitant]
  7. MORPHINE SULFATE [Concomitant]
  8. DOCUSATE (DOCUSATE) [Concomitant]
  9. TESTOSTERONE [Concomitant]

REACTIONS (9)
  - ALANINE AMINOTRANSFERASE INCREASED [None]
  - ASPARTATE AMINOTRANSFERASE INCREASED [None]
  - BLOOD ALKALINE PHOSPHATASE INCREASED [None]
  - BLOOD BILIRUBIN INCREASED [None]
  - CELLULITIS [None]
  - GENERAL PHYSICAL CONDITION ABNORMAL [None]
  - LIVER FUNCTION TEST ABNORMAL [None]
  - PULMONARY HYPERTENSION [None]
  - SEPSIS [None]
